FAERS Safety Report 6490101-9 (Version None)
Quarter: 2009Q4

REPORT INFORMATION
  Report Type: 
  Country: None (occurrence: None)
  Receive Date: 20091211
  Receipt Date: 20090309
  Transmission Date: 20100525
  Serious: No
  Sender: FDA-Public Use
  Company Number: A0772327A

PATIENT
  Age: 87 Year
  Sex: Female

DRUGS (6)
  1. FLOVENT [Suspect]
     Indication: ASTHMA
     Dosage: 1PUFF TWICE PER DAY
     Route: 055
     Dates: start: 20080101
  2. BONIVA [Concomitant]
  3. MOTRIN [Concomitant]
  4. IBS MEDICATION [Concomitant]
  5. UNSPECIFIED MEDICATION [Concomitant]
  6. VENTOLIN HFA [Concomitant]

REACTIONS (3)
  - COUGH [None]
  - DRUG INEFFECTIVE [None]
  - HYPOVENTILATION [None]
